FAERS Safety Report 6621713-7 (Version None)
Quarter: 2010Q1

REPORT INFORMATION
  Report Type: 
  Country: None (occurrence: None)
  Receive Date: 20100223
  Receipt Date: 20091130
  Transmission Date: 20100710
  Serious: No
  Sender: FDA-Public Use
  Company Number: 004067

PATIENT
  Sex: Female
  Weight: 56.8 kg

DRUGS (4)
  1. CIMZIA [Suspect]
     Indication: CROHN'S DISEASE
     Dosage: (400 MG SUBCUTANEOUS)
     Route: 058
     Dates: start: 20081201
  2. PAMINE FORTE [Concomitant]
  3. MULTI-VITAMINS [Concomitant]
  4. IMODIUM [Concomitant]

REACTIONS (6)
  - BLOOD PRESSURE INCREASED [None]
  - CHEST PAIN [None]
  - FEELING JITTERY [None]
  - HEART RATE INCREASED [None]
  - IRRITABILITY [None]
  - PAIN [None]
